FAERS Safety Report 25765288 (Version 1)
Quarter: 2025Q3

REPORT INFORMATION
  Report Type: Spontaneous
  Country: EU (occurrence: EU)
  Receive Date: 20250905
  Receipt Date: 20250905
  Transmission Date: 20251020
  Serious: Yes (Other)
  Sender: RANBAXY
  Company Number: EU-AFSSAPS-AM2025000397

PATIENT
  Age: 29 Year
  Sex: Female
  Weight: 126 kg

DRUGS (9)
  1. MORPHINE [Suspect]
     Active Substance: MORPHINE
     Indication: Caesarean section
     Dosage: 100 MICROGRAM, 1 DOSE
     Route: 008
     Dates: start: 20250428, end: 20250428
  2. NOREPINEPHRINE BITARTRATE [Suspect]
     Active Substance: NOREPINEPHRINE BITARTRATE
     Indication: Caesarean section
     Route: 008
     Dates: start: 20250428, end: 20250428
  3. CARBETOCIN [Suspect]
     Active Substance: CARBETOCIN
     Indication: Caesarean section
     Dosage: 200 MICROGRAM, 1 DOSE
     Route: 040
     Dates: start: 20250428, end: 20250428
  4. CEFAZOLIN SODIUM [Suspect]
     Active Substance: CEFAZOLIN SODIUM
     Indication: Caesarean section
     Dosage: 2 GRAM, 1 DOSE
     Route: 040
     Dates: start: 20250428, end: 20250428
  5. BUPIVACAINE [Suspect]
     Active Substance: BUPIVACAINE
     Indication: Caesarean section
     Dosage: 12.5 MILLIGRAM, 1 DOSE
     Route: 008
     Dates: start: 20250428, end: 20250428
  6. SUFENTANIL CITRATE [Suspect]
     Active Substance: SUFENTANIL CITRATE
     Indication: Caesarean section
     Dosage: 2.5 MICROGRAM, 1 DOSE
     Route: 008
     Dates: start: 20250428, end: 20250428
  7. PROPOFOL [Suspect]
     Active Substance: PROPOFOL
     Indication: Caesarean section
     Dosage: 20 MILLIGRAM, 1 DOSE
     Route: 040
     Dates: start: 20250428, end: 20250428
  8. ONDANSETRON [Suspect]
     Active Substance: ONDANSETRON
     Indication: Vomiting
     Route: 040
     Dates: start: 20250428, end: 20250428
  9. KEPPRA [Concomitant]
     Active Substance: LEVETIRACETAM
     Indication: Product used for unknown indication
     Route: 065

REACTIONS (1)
  - Pruritus [Recovered/Resolved]

NARRATIVE: CASE EVENT DATE: 20250428
